FAERS Safety Report 8933356 (Version 2)
Quarter: 2013Q1

REPORT INFORMATION
  Report Type: Report from Study
  Country: DE (occurrence: DE)
  Receive Date: 20121128
  Receipt Date: 20130109
  Transmission Date: 20140127
  Serious: Yes (Hospitalization)
  Sender: FDA-Public Use
  Company Number: DE-BAXTER-2012BAX023228

PATIENT
  Sex: Female

DRUGS (20)
  1. ENDOXAN 1G [Suspect]
     Indication: B-CELL LYMPHOMA
     Route: 042
     Dates: start: 20121012, end: 20121012
  2. ENDOXAN 1G [Suspect]
     Route: 042
     Dates: start: 20121026, end: 20121026
  3. RITUXIMAB [Suspect]
     Indication: B-CELL LYMPHOMA
     Route: 042
     Dates: start: 20121011, end: 20121011
  4. RITUXIMAB [Suspect]
     Route: 042
     Dates: start: 20121025, end: 20121025
  5. DOXORUBICIN HYDROCHLORIDE [Suspect]
     Indication: B-CELL LYMPHOMA
     Route: 042
     Dates: start: 20121012, end: 20121012
  6. DOXORUBICIN HYDROCHLORIDE [Suspect]
     Route: 042
     Dates: start: 20121026, end: 20121026
  7. VINCRISTINE [Suspect]
     Indication: B-CELL LYMPHOMA
     Route: 042
     Dates: start: 20121012, end: 20121012
  8. VINCRISTINE [Suspect]
     Route: 042
     Dates: start: 20121026, end: 20121026
  9. PREDNISOLONE [Suspect]
     Indication: B-CELL LYMPHOMA
     Route: 048
     Dates: start: 20120921, end: 20120927
  10. PREDNISOLONE [Suspect]
     Route: 048
     Dates: start: 20121029, end: 20121102
  11. FILGRASTIM [Suspect]
     Indication: B-CELL LYMPHOMA
     Route: 058
     Dates: start: 20121015, end: 20121024
  12. FILGRASTIM [Suspect]
     Route: 058
     Dates: start: 20121029
  13. PRAVASTATIN NATRIUM [Concomitant]
     Indication: HYPERLIPIDAEMIA
     Route: 048
  14. ACICLOVIR [Concomitant]
     Indication: PRODUCT USED FOR UNKNOWN INDICATION
     Route: 048
  15. CIPROFLOXACIN [Concomitant]
     Indication: URINARY TRACT INFECTION
     Route: 048
  16. SULFAMETHOXAZOL [Concomitant]
     Indication: PROPHYLAXIS
     Route: 048
     Dates: start: 20121015
  17. PARAFFIN [Concomitant]
     Indication: PRODUCT USED FOR UNKNOWN INDICATION
     Route: 048
  18. AMPHOTERICIN B [Concomitant]
     Indication: PRODUCT USED FOR UNKNOWN INDICATION
     Route: 048
  19. FENTANYL CITRATE [Concomitant]
     Indication: PRODUCT USED FOR UNKNOWN INDICATION
     Dosage: 25 MCG/H
     Route: 061
  20. PANTOPRAZOL [Concomitant]
     Indication: PROPHYLAXIS AGAINST GASTROINTESTINAL ULCER
     Route: 048

REACTIONS (5)
  - Nausea [Recovered/Resolved]
  - Vomiting [Recovered/Resolved]
  - Fatigue [Recovered/Resolved with Sequelae]
  - Thrombocytopenia [Recovered/Resolved with Sequelae]
  - Leukopenia [Recovered/Resolved with Sequelae]
